FAERS Safety Report 10229731 (Version 1)
Quarter: 2014Q2

REPORT INFORMATION
  Report Type: Spontaneous
  Country: US (occurrence: None)
  Receive Date: 20140610
  Receipt Date: 20140610
  Transmission Date: 20141212
  Serious: Yes (Disabling)
  Sender: FDA-Public Use
  Company Number: None

PATIENT
  Age: 73 Year
  Sex: Female
  Weight: 70.31 kg

DRUGS (1)
  1. TELMISARTAN [Suspect]
     Indication: HYPERTENSION
     Dosage: 1X DA. 1 PILL BY MOUTH
     Route: 048
     Dates: start: 201309, end: 201403

REACTIONS (2)
  - Diabetes mellitus [None]
  - Product substitution issue [None]
